FAERS Safety Report 5907066-8 (Version None)
Quarter: 2008Q4

REPORT INFORMATION
  Report Type: 
  Country: None (occurrence: None)
  Receive Date: 20081002
  Receipt Date: 20081002
  Transmission Date: 20090506
  Serious: No
  Sender: FDA-Public Use
  Company Number: None

PATIENT
  Age: 29 Year
  Sex: Female
  Weight: 56.6996 kg

DRUGS (1)
  1. XANAX [Suspect]
     Indication: PALPITATIONS
     Dosage: 1 TAB B.I.D. PO
     Route: 048
     Dates: start: 20080201, end: 20080207

REACTIONS (6)
  - ANXIETY [None]
  - DEPRESSION [None]
  - DIARRHOEA [None]
  - MYALGIA [None]
  - PARAESTHESIA [None]
  - PARANOIA [None]
